FAERS Safety Report 6826428-8 (Version None)
Quarter: 2010Q3

REPORT INFORMATION
  Report Type: 
  Country: None (occurrence: None)
  Receive Date: 20100709
  Receipt Date: 20100628
  Transmission Date: 20110219
  Serious: Yes (Hospitalization)
  Sender: FDA-Public Use
  Company Number: SE-JNJFOC-20090906207

PATIENT
  Weight: 1.13 kg

DRUGS (1)
  1. INFLIXIMAB [Suspect]
     Indication: DRUG EXPOSURE DURING PREGNANCY
     Route: 042

REACTIONS (2)
  - BACTERIAL SEPSIS [None]
  - PREMATURE BABY [None]
